FAERS Safety Report 20760601 (Version 1)
Quarter: 2022Q2

REPORT INFORMATION
  Report Type: Spontaneous
  Country: JP (occurrence: JP)
  Receive Date: 20220428
  Receipt Date: 20220428
  Transmission Date: 20220721
  Serious: Yes (Hospitalization, Other)
  Sender: FDA-Public Use
  Company Number: JP-ONO-2022JP010421

PATIENT
  Age: 61 Year
  Sex: Male
  Weight: 46 kg

DRUGS (11)
  1. OPDIVO [Suspect]
     Active Substance: NIVOLUMAB
     Indication: Gastric cancer recurrent
     Route: 041
  2. ANAMORELIN HYDROCHLORIDE [Suspect]
     Active Substance: ANAMORELIN HYDROCHLORIDE
     Indication: Cachexia
     Dosage: 100 MG, EVERYDAY
     Route: 048
     Dates: start: 20210616, end: 20210625
  3. ANAMORELIN HYDROCHLORIDE [Suspect]
     Active Substance: ANAMORELIN HYDROCHLORIDE
     Dosage: 100 MG, EVERYDAY
     Route: 048
     Dates: start: 20210630, end: 20210706
  4. OXYCODONE [Concomitant]
     Active Substance: OXYCODONE
     Dosage: 40 MG, EVERYDAY
     Route: 048
     Dates: start: 20210616, end: 20210706
  5. TAPENTADOL HYDROCHLORIDE [Concomitant]
     Active Substance: TAPENTADOL HYDROCHLORIDE
     Indication: Product used for unknown indication
     Dosage: 100-200 MG, EVERYDAY
     Route: 048
     Dates: end: 20210706
  6. CALONAL [Concomitant]
     Active Substance: ACETAMINOPHEN
     Indication: Product used for unknown indication
     Dosage: 2400 MG, EVERYDAY
     Route: 048
     Dates: end: 20210706
  7. KETOPROFEN [Concomitant]
     Active Substance: KETOPROFEN
     Indication: Product used for unknown indication
     Dosage: 40 MG, EVERYDAY
     Route: 062
     Dates: end: 20210706
  8. OXINORM [Concomitant]
     Indication: Product used for unknown indication
     Dosage: 30 MG, EVERYDAY
     Route: 048
     Dates: start: 20210616, end: 20210625
  9. OXINORM [Concomitant]
     Dosage: 10 MG, PRN
     Route: 048
     Dates: start: 20210626, end: 20210629
  10. OXINORM [Concomitant]
     Dosage: 30 MG, EVERYDAY
     Route: 048
     Dates: start: 20210702, end: 20210706
  11. SYMPROIC [Concomitant]
     Active Substance: NALDEMEDINE
     Indication: Product used for unknown indication
     Dosage: 0.2 MG, EVERYDAY
     Route: 048
     Dates: start: 20210623, end: 20210706

REACTIONS (1)
  - Cholecystitis [Recovered/Resolved]

NARRATIVE: CASE EVENT DATE: 20210625
